FAERS Safety Report 24687377 (Version 1)
Quarter: 2024Q4

REPORT INFORMATION
  Report Type: Spontaneous
  Country: US (occurrence: US)
  Receive Date: 20241202
  Receipt Date: 20241202
  Transmission Date: 20250114
  Serious: Yes (Life-Threatening, Hospitalization)
  Sender: MYLAN
  Company Number: US-MYLANLABS-2024M1105262

PATIENT
  Age: 77 Year
  Sex: Female

DRUGS (6)
  1. CITALOPRAM [Suspect]
     Active Substance: CITALOPRAM
     Indication: Schizophrenia
     Dosage: 40 MILLIGRAM, QD
     Route: 065
  2. HALOPERIDOL [Suspect]
     Active Substance: HALOPERIDOL
     Indication: Catatonia
     Dosage: 2 MILLIGRAM, QID, FOUR TIMES DAILY
     Route: 042
  3. TOPIRAMATE [Suspect]
     Active Substance: TOPIRAMATE
     Indication: Schizophrenia
     Dosage: 25 MILLIGRAM, QID
     Route: 065
  4. CLONAZEPAM [Suspect]
     Active Substance: CLONAZEPAM
     Indication: Schizophrenia
     Dosage: 1 MILLIGRAM, QID
     Route: 065
  5. QUETIAPINE [Suspect]
     Active Substance: QUETIAPINE
     Indication: Schizophrenia
     Dosage: 400 MILLIGRAM, QD
     Route: 065
  6. LORAZEPAM [Suspect]
     Active Substance: LORAZEPAM
     Indication: Catatonia
     Dosage: 2 MILLIGRAM, Q6H
     Route: 042

REACTIONS (1)
  - Drug ineffective [Unknown]
